FAERS Safety Report 22685082 (Version 2)
Quarter: 2024Q1

REPORT INFORMATION
  Report Type: Spontaneous
  Country: PL (occurrence: PL)
  Receive Date: 20230710
  Receipt Date: 20240328
  Transmission Date: 20240410
  Serious: Yes (Other)
  Sender: FDA-Public Use
  Company Number: PL-WZFPOLFA-316172

PATIENT
  Age: 67 Year
  Sex: Female
  Weight: 83 kg

DRUGS (6)
  1. DEXAMETHASONE [Suspect]
     Active Substance: DEXAMETHASONE
     Indication: Postoperative care
     Dosage: 0.L%, 1 MG/ML, EYE DROPS, SUSPENSION
     Route: 047
  2. DEXAMETHASONE [Suspect]
     Active Substance: DEXAMETHASONE
     Indication: Postoperative care
     Dosage: WZF 0.L%, 1 MG/ML, EYE DROPS, SUSPENSION
     Route: 047
     Dates: start: 20190213, end: 20190315
  3. DICLOFENAC SODIUM [Concomitant]
     Active Substance: DICLOFENAC\DICLOFENAC SODIUM
     Indication: Postoperative care
     Dosage: 1 MG/ML EYE DROPS, SOLUTION
     Route: 047
  4. DICLOFENAC SODIUM [Concomitant]
     Active Substance: DICLOFENAC\DICLOFENAC SODIUM
     Indication: Postoperative care
     Dosage: 1 MG/ML EYE DROPS, SOLUTION
     Route: 047
     Dates: start: 20190213, end: 20190315
  5. VIGAMOX [Suspect]
     Active Substance: MOXIFLOXACIN HYDROCHLORIDE
     Indication: Postoperative care
     Dosage: 5 MG/ML EYE DROPS, SOLUTION
     Route: 047
  6. VIGAMOX [Suspect]
     Active Substance: MOXIFLOXACIN HYDROCHLORIDE
     Indication: Postoperative care
     Dosage: 5 MG/ML EYE DROPS, SOLUTION
     Route: 047
     Dates: start: 20190213, end: 20190315

REACTIONS (1)
  - Headache [Recovered/Resolved]

NARRATIVE: CASE EVENT DATE: 20190215
